FAERS Safety Report 4333413-7 (Version None)
Quarter: 2004Q1

REPORT INFORMATION
  Report Type: 
  Country: None (occurrence: None)
  Receive Date: 20040329
  Receipt Date: 20040226
  Transmission Date: 20041129
  Serious: No
  Sender: FDA-Public Use
  Company Number: 04P-163-0251497-00

PATIENT
  Age: 58 Year
  Sex: Female
  Weight: 68.0396 kg

DRUGS (3)
  1. HUMIRA [Suspect]
     Indication: RHEUMATOID ARTHRITIS
     Dosage: 40 MG, 1 IN 2 WK, SUBCUTANEOUS
     Route: 058
     Dates: start: 20040130
  2. ROFECOXIB [Concomitant]
  3. METHOTREXATE [Concomitant]

REACTIONS (10)
  - ASTHENIA [None]
  - BALANCE DISORDER [None]
  - CONDITION AGGRAVATED [None]
  - DRUG INEFFECTIVE [None]
  - EPISTAXIS [None]
  - FATIGUE [None]
  - HEADACHE [None]
  - HERPES SIMPLEX [None]
  - NASAL CONGESTION [None]
  - SINUS CONGESTION [None]
